FAERS Safety Report 22218408 (Version 2)
Quarter: 2023Q2

REPORT INFORMATION
  Report Type: Spontaneous
  Country: TR (occurrence: TR)
  Receive Date: 20230417
  Receipt Date: 20230420
  Transmission Date: 20230721
  Serious: Yes (Hospitalization, Other)
  Sender: FDA-Public Use
  Company Number: TR-MLMSERVICE-20230405-4201864-1

PATIENT
  Age: 7 Year
  Sex: Female

DRUGS (3)
  1. CLINDAMYCIN PHOSPHATE [Suspect]
     Active Substance: CLINDAMYCIN PHOSPHATE
     Dosage: UNK
     Route: 042
  2. AMPICILLIN [Suspect]
     Active Substance: AMPICILLIN
     Dosage: UNK
     Route: 042
  3. SULBACTAM [Suspect]
     Active Substance: SULBACTAM
     Dosage: UNK
     Route: 042

REACTIONS (2)
  - Serum sickness-like reaction [Recovered/Resolved]
  - Condition aggravated [Recovered/Resolved]
